FAERS Safety Report 8541268-X (Version None)
Quarter: 2012Q3

REPORT INFORMATION
  Report Type: 
  Country: None (occurrence: None)
  Receive Date: 20120726
  Receipt Date: 20120723
  Transmission Date: 20120928
  Serious: Yes (Hospitalization)
  Sender: FDA-Public Use
  Company Number: DE-PFIZER INC-2011193295

PATIENT
  Age: 47 Year
  Sex: Male
  Weight: 85 kg

DRUGS (7)
  1. PRASUGREL [Concomitant]
     Indication: MYOCARDIAL INFARCTION
     Dosage: 10 MG, 1X/DAY
     Dates: start: 20110805
  2. BLINDED NO SUBJECT DRUG [Suspect]
     Indication: ACUTE MYOCARDIAL INFARCTION
     Dosage: UNK
     Route: 048
     Dates: start: 20110805
  3. EPLERENONE [Suspect]
     Indication: ACUTE MYOCARDIAL INFARCTION
     Dosage: UNK
     Route: 048
     Dates: start: 20110805
  4. PLACEBO [Suspect]
     Indication: ACUTE MYOCARDIAL INFARCTION
     Dosage: UNK
     Route: 048
     Dates: start: 20110805
  5. ASPIRIN [Concomitant]
     Indication: CORONARY ARTERY DISEASE
     Dosage: 100 MG, 1X/DAY
     Route: 048
     Dates: start: 20110805
  6. RAMIPRIL [Suspect]
     Indication: CORONARY ARTERY DISEASE
     Dosage: 2.5 MG, 1X/DAY
     Route: 048
     Dates: start: 20110808, end: 20110819
  7. BISOPROLOL FUMARATE [Suspect]
     Indication: HYPERTENSION
     Dosage: 2.5 MG, 1X/DAY
     Route: 048
     Dates: start: 20110807, end: 20110819

REACTIONS (2)
  - HYPOTENSION [None]
  - BRADYCARDIA [None]
